FAERS Safety Report 9618060 (Version 1)
Quarter: 2013Q4

REPORT INFORMATION
  Report Type: Spontaneous
  Country: US (occurrence: US)
  Receive Date: 20131012
  Receipt Date: 20131012
  Transmission Date: 20140711
  Serious: Yes (Hospitalization)
  Sender: FDA-Public Use
  Company Number: US-JNJFOC-20130905046

PATIENT
  Age: 61 Year
  Sex: Female
  Weight: 53.52 kg

DRUGS (10)
  1. IBUPROFEN [Suspect]
     Indication: MIGRAINE
     Route: 048
  2. INDOMETHACIN [Suspect]
     Indication: MIGRAINE
     Route: 065
  3. OXYCODONE [Concomitant]
     Indication: COMPLEX REGIONAL PAIN SYNDROME
     Route: 065
  4. TOPAMAX [Concomitant]
     Indication: MIGRAINE
     Route: 065
  5. TOPAMAX [Concomitant]
     Indication: EPILEPSY
     Route: 065
  6. PLAVIX [Concomitant]
     Indication: ANTICOAGULANT THERAPY
     Route: 065
  7. B12 INJECTION [Concomitant]
     Indication: PERNICIOUS ANAEMIA
     Route: 065
  8. VENTOLIN HFA [Concomitant]
     Indication: ASTHMA
     Dosage: AS NEEDED
     Route: 065
  9. FOLIC ACID [Concomitant]
     Indication: ANAEMIA
     Route: 065
  10. KEPPRA [Concomitant]
     Indication: EPILEPSY
     Route: 065

REACTIONS (6)
  - Hypotension [Unknown]
  - Haematochezia [Unknown]
  - Renal failure [Unknown]
  - Haematemesis [Unknown]
  - Diarrhoea [Unknown]
  - Abdominal discomfort [Unknown]
